FAERS Safety Report 23406015 (Version 1)
Quarter: 2024Q1

REPORT INFORMATION
  Report Type: Spontaneous
  Country: CN (occurrence: CN)
  Receive Date: 20240116
  Receipt Date: 20240116
  Transmission Date: 20240409
  Serious: Yes (Life-Threatening)
  Sender: FDA-Public Use
  Company Number: CN-BAYER-2024A006461

PATIENT
  Age: 56 Year
  Sex: Male
  Weight: 62 kg

DRUGS (1)
  1. ULTRAVIST [Suspect]
     Active Substance: IOPROMIDE
     Indication: Computerised tomogram abdomen
     Dosage: 75 ML, ONCE, HIGH PRESSURE INJECTION (2.4ML/S)
     Route: 042
     Dates: start: 20240106, end: 20240106

REACTIONS (9)
  - Anaphylactic shock [Recovering/Resolving]
  - Rash pruritic [Recovering/Resolving]
  - Blood pressure decreased [Not Recovered/Not Resolved]
  - Asphyxia [Recovering/Resolving]
  - Palpitations [Recovering/Resolving]
  - Dysphoria [Recovered/Resolved]
  - Dysphonia [None]
  - Oxygen saturation decreased [None]
  - Chest discomfort [Recovering/Resolving]

NARRATIVE: CASE EVENT DATE: 20240106
